FAERS Safety Report 8929210 (Version 3)
Quarter: 2012Q4

REPORT INFORMATION
  Report Type: 
  Country: ZA (occurrence: ZA)
  Receive Date: 20121127
  Receipt Date: 20121217
  Transmission Date: 20130627
  Serious: Yes (Other)
  Sender: FDA-Public Use
  Company Number: PHHY2012ZA108108

PATIENT
  Sex: Female

DRUGS (7)
  1. ACLASTA [Suspect]
     Indication: OSTEOPOROSIS
     Dosage: 5 mg, yearly
     Route: 042
     Dates: start: 201008
  2. ACLASTA [Suspect]
     Dosage: 5 mg, UNK
     Route: 042
     Dates: start: 201112
  3. ELTROXIN [Concomitant]
     Dosage: UNK UKN, UNK
  4. RIVOTRIL [Concomitant]
     Dosage: UNK UKN, UNK
  5. ROXANOL [Concomitant]
     Dosage: UNK UKN, UNK
  6. NEXIAM [Concomitant]
     Indication: GASTRIC ULCER
     Dosage: UNK UKN, UNK
  7. MIGRAL [Concomitant]
     Indication: MIGRAINE
     Dosage: 1mg ergo and 50 mg cycl

REACTIONS (11)
  - Bladder fibrosis [Unknown]
  - Bladder obstruction [Unknown]
  - Cardiac failure [Unknown]
  - Tremor [Recovered/Resolved]
  - Inflammation [Unknown]
  - Feeling abnormal [Unknown]
  - Bone density abnormal [Not Recovered/Not Resolved]
  - Arthropathy [Unknown]
  - Drug ineffective [Not Recovered/Not Resolved]
  - Malaise [Unknown]
  - Headache [Unknown]
